FAERS Safety Report 5703538-X (Version None)
Quarter: 2008Q2

REPORT INFORMATION
  Report Type: 
  Country: None (occurrence: None)
  Receive Date: 20080409
  Receipt Date: 20080401
  Transmission Date: 20081010
  Serious: Yes (Other)
  Sender: FDA-Public Use
  Company Number: 2008007936

PATIENT
  Age: 72 Year
  Sex: Female
  Weight: 136.0791 kg

DRUGS (3)
  1. ARTHRITIS FORMULA BENGAY (MENTHOL, METHYL SALICYLATE) [Suspect]
     Indication: ARTHRITIS
     Dosage: 1 PEA SIZED DAB ONE TIME, TOPICAL
     Route: 061
     Dates: start: 20080312, end: 20080313
  2. AMARYL [Concomitant]
  3. HUMULIN (INSULIN HUMAN, INSULIN ISOPHANE, HUMAN BIOSYNTHETIC) [Concomitant]

REACTIONS (7)
  - BLISTER [None]
  - BURNING SENSATION [None]
  - DRUG INEFFECTIVE [None]
  - ERYTHEMA [None]
  - RASH PRURITIC [None]
  - SCAB [None]
  - SKIN IRRITATION [None]
